FAERS Safety Report 5909245-2 (Version None)
Quarter: 2008Q4

REPORT INFORMATION
  Report Type: 
  Country: None (occurrence: None)
  Receive Date: 20081006
  Receipt Date: 20081001
  Transmission Date: 20090506
  Serious: Yes (Death, Other)
  Sender: FDA-Public Use
  Company Number: PHHY2008JP23271

PATIENT
  Age: 44 Year
  Sex: Male

DRUGS (3)
  1. CYCLOSPORINE [Suspect]
     Indication: BONE MARROW TRANSPLANT
  2. METHOTREXATE SODIUM [Concomitant]
     Indication: BONE MARROW TRANSPLANT
  3. CYCLOPHOSPHAMIDE [Concomitant]
     Indication: BONE MARROW TRANSPLANT

REACTIONS (6)
  - ENCEPHALITIS HERPES [None]
  - GRAFT VERSUS HOST DISEASE [None]
  - INFECTION [None]
  - MULTI-ORGAN FAILURE [None]
  - PANCYTOPENIA [None]
  - PNEUMONIA HERPES VIRAL [None]
